FAERS Safety Report 5311941-5 (Version None)
Quarter: 2007Q2

REPORT INFORMATION
  Report Type: 
  Country: None (occurrence: None)
  Receive Date: 20070430
  Receipt Date: 20060810
  Transmission Date: 20071010
  Serious: No
  Sender: FDA-Public Use
  Company Number: 2006UW12367

PATIENT
  Age: 44 Year
  Sex: Female
  Weight: 176.4 kg

DRUGS (19)
  1. NEXIUM [Suspect]
     Indication: GASTROOESOPHAGEAL REFLUX DISEASE
     Route: 048
  2. NEXIUM [Suspect]
     Route: 048
  3. INSULIN GLUCOPHAGE [Concomitant]
  4. VYTORIN [Concomitant]
  5. LASIX [Concomitant]
  6. POTASSIUM ACETATE [Concomitant]
  7. AVALIDE [Concomitant]
  8. NEURONTIN [Concomitant]
  9. TIMOPTIC [Concomitant]
  10. TRAVATAN [Concomitant]
  11. IMDUR [Concomitant]
  12. BYETTA [Concomitant]
  13. ASPIRIN [Concomitant]
  14. MVI WITH FE [Concomitant]
  15. LOVENOX [Concomitant]
  16. PROVERA [Concomitant]
  17. METOPROLOL SUCCINATE [Concomitant]
  18. MAGNESIUM OXIDE [Concomitant]
  19. PHENERGAN HCL [Concomitant]

REACTIONS (6)
  - ABDOMINAL PAIN [None]
  - DIARRHOEA [None]
  - GALLBLADDER DISORDER [None]
  - NAUSEA [None]
  - POSTOPERATIVE ADHESION [None]
  - VOMITING [None]
